FAERS Safety Report 6172502-1 (Version None)
Quarter: 2009Q2

REPORT INFORMATION
  Report Type: 
  Country: None (occurrence: None)
  Receive Date: 20090427
  Receipt Date: 20090416
  Transmission Date: 20091009
  Serious: Yes (Other)
  Sender: FDA-Public Use
  Company Number: 250519

PATIENT
  Age: 46 Year
  Sex: Male
  Weight: 49 kg

DRUGS (1)
  1. ETHANOL [Suspect]
     Indication: CHEMICAL POISONING
     Dosage: 500 ML; INTRAVENOUS
     Route: 042

REACTIONS (2)
  - AGGRESSION [None]
  - OFF LABEL USE [None]
